FAERS Safety Report 9741406 (Version 1)
Quarter: 2013Q4

REPORT INFORMATION
  Report Type: Spontaneous
  Country: CN (occurrence: CN)
  Receive Date: 20131209
  Receipt Date: 20131209
  Transmission Date: 20140711
  Serious: Yes (Hospitalization)
  Sender: FDA-Public Use
  Company Number: PHHY2013CN142043

PATIENT
  Age: 78 Year
  Sex: Female

DRUGS (1)
  1. ZOLEDRONIC ACID [Suspect]
     Indication: OSTEOPOROSIS
     Route: 042

REACTIONS (11)
  - Venous thrombosis limb [Unknown]
  - Local swelling [Unknown]
  - Pain in extremity [Unknown]
  - Vasodilatation [Unknown]
  - Skin discolouration [Unknown]
  - Temperature difference of extremities [Unknown]
  - Fibrin degradation products increased [Unknown]
  - Arteriosclerosis [Unknown]
  - Pelvic venous thrombosis [Unknown]
  - Deep vein thrombosis [Unknown]
  - Venous thrombosis [Unknown]
